FAERS Safety Report 8922397 (Version 5)
Quarter: 2013Q1

REPORT INFORMATION
  Report Type: Spontaneous
  Country: JP (occurrence: JP)
  Receive Date: 20121123
  Receipt Date: 20130103
  Transmission Date: 20140127
  Serious: Yes (Other)
  Sender: FDA-Public Use
  Company Number: JP-JNJFOC-20121110902

PATIENT
  Age: 44 Year
  Sex: Male

DRUGS (3)
  1. REMICADE [Suspect]
     Indication: CROHN^S DISEASE
     Route: 042
     Dates: start: 200705
  2. AZANIN [Suspect]
     Indication: PRODUCT USED FOR UNKNOWN INDICATION
     Route: 048
     Dates: start: 200809
  3. ADALIMUMAB [Suspect]
     Indication: CROHN^S DISEASE
     Route: 065
     Dates: start: 201101

REACTIONS (2)
  - Pulmonary tuberculosis [Not Recovered/Not Resolved]
  - Drug effect decreased [Unknown]
